FAERS Safety Report 5160724-8 (Version None)
Quarter: 2006Q4

REPORT INFORMATION
  Report Type: 
  Country: None (occurrence: None)
  Receive Date: 20061121
  Receipt Date: 20061113
  Transmission Date: 20070319
  Serious: Yes (Death, Life-Threatening)
  Sender: FDA-Public Use
  Company Number: GXKR2006US07273

PATIENT
  Age: 89 Year
  Sex: Male

DRUGS (1)
  1. ACETYLSALICYLIC ACID (NGX) (ACETYLSALICYLIC ACID) TABLET [Suspect]
     Indication: INCORRECT DOSE ADMINISTERED
     Dosage: 30 DF, ONCE/SINGLE, ORAL
     Route: 048

REACTIONS (5)
  - DYSPHAGIA [None]
  - INTENTIONAL OVERDOSE [None]
  - OESOPHAGEAL OBSTRUCTION [None]
  - OESOPHAGEAL PERFORATION [None]
  - REFUSAL OF TREATMENT BY PATIENT [None]
